FAERS Safety Report 17849924 (Version 1)
Quarter: 2020Q2

REPORT INFORMATION
  Report Type: Spontaneous
  Country: FR (occurrence: FR)
  Receive Date: 20200602
  Receipt Date: 20200602
  Transmission Date: 20200714
  Serious: Yes (Hospitalization)
  Sender: FDA-Public Use
  Company Number: FR-TEVA-2020-FR-1242289

PATIENT
  Age: 86 Year
  Sex: Male
  Weight: 77 kg

DRUGS (15)
  1. FUROSEMIDE. [Suspect]
     Active Substance: FUROSEMIDE
     Indication: CARDIAC FAILURE
     Dosage: DOSE INCREASED: 500 MG 1/2 PILL/DAY, 40 MG 1 PILL/DAY (IN CASE OF WEIGHT INCREASE, OR LOWER LIMB OED
     Route: 002
     Dates: start: 201911
  2. FUROSEMIDE. [Suspect]
     Active Substance: FUROSEMIDE
     Dosage: DOSE DECREASED (80 MG)
     Route: 002
     Dates: start: 20191113, end: 201911
  3. TAFAMIDIS MEGLUMINE [Concomitant]
     Active Substance: TAFAMIDIS MEGLUMINE
     Dosage: UNK
  4. TAFAMIDIS MEGLUMINE [Suspect]
     Active Substance: TAFAMIDIS MEGLUMINE
     Indication: CARDIAC AMYLOIDOSIS
     Dosage: 61 MG
     Route: 048
     Dates: start: 20191017
  5. BISOPROLOL [Suspect]
     Active Substance: BISOPROLOL
     Indication: ATRIAL FIBRILLATION
     Dosage: DOSE INCREASED (5 MG)
     Route: 002
     Dates: start: 20191113, end: 201911
  6. COUMADIN [Concomitant]
     Active Substance: WARFARIN SODIUM
     Dosage: 1 DOSAGE FORMS
     Route: 048
     Dates: start: 201911
  7. ALLOPURINOL. [Concomitant]
     Active Substance: ALLOPURINOL
     Indication: GOUT
     Dates: start: 20150127
  8. COUMADIN [Concomitant]
     Active Substance: WARFARIN SODIUM
     Indication: ATRIAL FIBRILLATION
     Route: 048
     Dates: start: 20130211, end: 201911
  9. FUROSEMIDE. [Suspect]
     Active Substance: FUROSEMIDE
     Dosage: 250 MG
     Route: 002
     Dates: start: 20140130, end: 20191031
  10. BISOPROLOL [Suspect]
     Active Substance: BISOPROLOL
     Dosage: 1.25 MG
     Route: 002
     Dates: start: 20130211, end: 20191031
  11. BISOPROLOL [Suspect]
     Active Substance: BISOPROLOL
     Dosage: DOSE DECREASED (1.25 MG)
     Route: 002
     Dates: start: 201911
  12. CETIRIZINE [Concomitant]
     Active Substance: CETIRIZINE HYDROCHLORIDE
     Indication: PRURITUS
     Dates: start: 20190822
  13. FUROSEMIDE. [Suspect]
     Active Substance: FUROSEMIDE
     Dosage: 2 DOSAGE FORMS
     Route: 002
     Dates: start: 201911, end: 201911
  14. ALFUZOSIN [Concomitant]
     Active Substance: ALFUZOSIN
     Indication: PROSTATIC ADENOMA
     Route: 048
     Dates: start: 20190822, end: 201911
  15. ALFUZOSIN [Concomitant]
     Active Substance: ALFUZOSIN
     Dosage: LP (UNSPECIFIED) (1 DOSAGE FORMS)
     Route: 048
     Dates: start: 201911

REACTIONS (1)
  - Cardiac failure [Recovered/Resolved]

NARRATIVE: CASE EVENT DATE: 20191116
